FAERS Safety Report 18861146 (Version 1)
Quarter: 2021Q1

REPORT INFORMATION
  Report Type: Spontaneous
  Country: US (occurrence: US)
  Receive Date: 20210208
  Receipt Date: 20210208
  Transmission Date: 20210420
  Serious: No
  Sender: FDA-Public Use
  Company Number: US-RECORDATI RARE DISEASES-2106468

PATIENT
  Age: 71 Year
  Sex: Male
  Weight: 69.39 kg

DRUGS (18)
  1. POTASSIUM CHLORIDE. [Concomitant]
     Active Substance: POTASSIUM CHLORIDE
  2. PRANDIN [DEFLAZACORT] [Concomitant]
     Active Substance: DEFLAZACORT
  3. SACUBITRIL;VALSARTAN [Concomitant]
     Active Substance: SACUBITRIL\VALSARTAN
  4. TORSEMIDE. [Concomitant]
     Active Substance: TORSEMIDE
  5. MULTIVITAMIN [Concomitant]
     Active Substance: VITAMINS
  6. TOPROL XL [Concomitant]
     Active Substance: METOPROLOL SUCCINATE
  7. ELIQUIS [Concomitant]
     Active Substance: APIXABAN
  8. VITAMIN B [Concomitant]
     Active Substance: VITAMIN B
  9. METFORMIN [Concomitant]
     Active Substance: METFORMIN HYDROCHLORIDE
  10. TESTOSTERONE. [Concomitant]
     Active Substance: TESTOSTERONE
  11. ISTURISA [Suspect]
     Active Substance: OSILODROSTAT PHOSPHATE
  12. AMLODIPINE [Concomitant]
     Active Substance: AMLODIPINE BESYLATE
  13. METHOTREXATE. [Concomitant]
     Active Substance: METHOTREXATE
  14. VITAMIN D3 [Concomitant]
     Active Substance: CHOLECALCIFEROL
  15. SALICYLIC ACID. [Concomitant]
     Active Substance: SALICYLIC ACID
  16. CRESTOR [Concomitant]
     Active Substance: ROSUVASTATIN CALCIUM
  17. ISTURISA [Suspect]
     Active Substance: OSILODROSTAT PHOSPHATE
     Indication: PITUITARY-DEPENDENT CUSHING^S SYNDROME
     Dates: start: 20201125
  18. FLOMAX [Concomitant]
     Active Substance: TAMSULOSIN HYDROCHLORIDE

REACTIONS (6)
  - Oedema peripheral [Recovering/Resolving]
  - Blood glucose increased [Recovered/Resolved]
  - Confusional state [Not Recovered/Not Resolved]
  - Fatigue [Not Recovered/Not Resolved]
  - Somnolence [Not Recovered/Not Resolved]
  - Diarrhoea [Recovered/Resolved]

NARRATIVE: CASE EVENT DATE: 2020
